FAERS Safety Report 9201582 (Version 1)
Quarter: 2013Q2

REPORT INFORMATION
  Report Type: Spontaneous
  Country: US (occurrence: US)
  Receive Date: 20130401
  Receipt Date: 20130401
  Transmission Date: 20140414
  Serious: No
  Sender: FDA-Public Use
  Company Number: US-BAYER-2013-040145

PATIENT
  Age: 14 Year
  Sex: Female
  Weight: 55.33 kg

DRUGS (1)
  1. ALEVE CAPLET [Suspect]
     Indication: BACK PAIN
     Dosage: 6 DF, ONCE
     Route: 048
     Dates: start: 20130322, end: 20130322

REACTIONS (1)
  - Overdose [None]
